FAERS Safety Report 5781391-6 (Version None)
Quarter: 2008Q2

REPORT INFORMATION
  Report Type: 
  Country: None (occurrence: None)
  Receive Date: 20080623
  Receipt Date: 20080610
  Transmission Date: 20081010
  Serious: Yes (Hospitalization, Other)
  Sender: FDA-Public Use
  Company Number: JP-NOVOPROD-273450

PATIENT
  Age: 62 Year
  Sex: Female
  Weight: 52 kg

DRUGS (10)
  1. PENFILL 30R CHU [Suspect]
     Indication: LATENT AUTOIMMUNE DIABETES IN ADULTS
     Dosage: 20-0-10 IU, QD
     Dates: start: 19990829
  2. PENFILL 30R CHU [Suspect]
     Dosage: 16-0-10 IU, QD
     Dates: start: 20031212
  3. PENFILL 30R CHU [Suspect]
     Dosage: 18-0-10 IU, QD
     Dates: start: 20040609
  4. PENFILL 30R CHU [Suspect]
     Dosage: 20 IU, QD
     Dates: start: 20060222
  5. MICARDIS [Concomitant]
     Indication: HYPERTENSION
     Dosage: 40 MG, QD
     Route: 048
     Dates: start: 20070502
  6. ALOSENN                            /00476901/ [Concomitant]
     Indication: CONSTIPATION
     Dosage: 3 G, QD
     Route: 048
     Dates: start: 20031128
  7. ALINAMIN F                         /00257801/ [Concomitant]
     Indication: CONSTIPATION
     Dosage: 75 MG, QD
     Route: 048
     Dates: start: 20070405
  8. MEPTIN [Concomitant]
     Indication: ASTHMA
     Dosage: .025 MG, UNK
     Route: 048
     Dates: start: 20001026
  9. CALBLOCK [Concomitant]
     Indication: HYPERTENSION
     Dosage: 8 MG, QD
     Dates: start: 20070528
  10. MUCOSTA [Concomitant]
     Indication: GASTRITIS
     Dosage: 300 MG, UNK
     Dates: start: 20070525

REACTIONS (2)
  - BLOOD GLUCOSE FLUCTUATION [None]
  - HYPOGLYCAEMIA [None]
